FAERS Safety Report 12698178 (Version 2)
Quarter: 2016Q4

REPORT INFORMATION
  Report Type: Spontaneous
  Country: US (occurrence: US)
  Receive Date: 20160830
  Receipt Date: 20161025
  Transmission Date: 20170207
  Serious: No
  Sender: FDA-Public Use
  Company Number: US-JNJFOC-20160712122

PATIENT
  Sex: Male
  Weight: 100.25 kg

DRUGS (2)
  1. RISPERIDONE. [Suspect]
     Active Substance: RISPERIDONE
     Indication: MOOD SWINGS
     Route: 048
     Dates: start: 200906, end: 200912
  2. RISPERIDONE. [Suspect]
     Active Substance: RISPERIDONE
     Indication: MOOD SWINGS
     Route: 048
     Dates: start: 201104, end: 201202

REACTIONS (3)
  - Gynaecomastia [Unknown]
  - Weight increased [Unknown]
  - Emotional disorder [Unknown]

NARRATIVE: CASE EVENT DATE: 2012
